FAERS Safety Report 8489855-1 (Version None)
Quarter: 2012Q3

REPORT INFORMATION
  Report Type: 
  Country: None (occurrence: None)
  Receive Date: 20120705
  Receipt Date: 20120627
  Transmission Date: 20120928
  Serious: Yes (Death, Hospitalization)
  Sender: FDA-Public Use
  Company Number: JP-SANOFI-AVENTIS-2012SA041463

PATIENT
  Age: 81 Year
  Sex: Male

DRUGS (13)
  1. DEXAMETHASONE SODIUM PHOSPHATE [Concomitant]
     Indication: PROSTATE CANCER
     Dosage: STRENGTH: 0.5 MG
     Route: 048
     Dates: end: 20120530
  2. LASIX [Concomitant]
     Dosage: STRENGTH: 20 MG
     Route: 048
     Dates: end: 20120530
  3. FAMOTIDINE [Concomitant]
     Dosage: STRENGTH: 20 MG
     Route: 048
     Dates: end: 20120530
  4. GASMOTIN [Concomitant]
     Dosage: STRENGTH: 5 MG
     Route: 048
     Dates: end: 20120530
  5. TAXOTERE [Interacting]
     Route: 042
     Dates: start: 20120517
  6. ZOLADEX [Interacting]
     Route: 058
     Dates: start: 20120314, end: 20120314
  7. BACTERIA NOS [Concomitant]
     Route: 048
     Dates: end: 20120530
  8. MUCOSTA [Concomitant]
     Dosage: STRENGTH: 100 MG
     Route: 048
     Dates: end: 20120530
  9. PAXIL [Concomitant]
     Route: 048
     Dates: end: 20120530
  10. TAXOTERE [Interacting]
     Route: 042
     Dates: start: 20120420
  11. TAMSULOSIN HYDROCHLORIDE [Concomitant]
     Dosage: STRENGTH: 0.2 MG
     Route: 048
     Dates: end: 20120530
  12. TAXOTERE [Suspect]
     Route: 042
     Dates: start: 20120405
  13. ALLEGRA [Concomitant]
     Dosage: STRENGTH: 60 MG
     Route: 048
     Dates: end: 20120530

REACTIONS (4)
  - INTERSTITIAL LUNG DISEASE [None]
  - PYREXIA [None]
  - DYSPNOEA [None]
  - DRUG INTERACTION [None]
